FAERS Safety Report 8596628-8 (Version None)
Quarter: 2012Q3

REPORT INFORMATION
  Report Type: 
  Country: None (occurrence: None)
  Receive Date: 20120815
  Receipt Date: 20120806
  Transmission Date: 20120928
  Serious: Yes (Other)
  Sender: FDA-Public Use
  Company Number: CHPA2012US006230

PATIENT
  Age: 79 Year
  Sex: Female
  Weight: 61.224 kg

DRUGS (8)
  1. MAALOX ANTACID/ANTIGAS RS LIQ COOL MINT [Suspect]
     Indication: GASTROOESOPHAGEAL REFLUX DISEASE
     Dosage: 1 TSP, 6QD
     Route: 048
     Dates: start: 20110501
  2. ENSURE [Concomitant]
     Dosage: UNK, UNK
  3. BELLADONNA EXTRACT [Concomitant]
     Indication: MUSCLE SPASMS
     Dosage: UNK, UNK
  4. AMBIEN [Concomitant]
     Indication: INSOMNIA
     Dosage: UNK, UNK
  5. ANTIHYPERTENSIVES [Concomitant]
     Indication: BLOOD PRESSURE MANAGEMENT
     Dosage: UNK, UNK
  6. CARDURA CR [Concomitant]
     Indication: HYPERTENSION
     Dosage: 1 MG, QD
     Route: 048
  7. TYLENOL ARTHRITIS [Concomitant]
     Dosage: UNK, UNK
  8. ACIPHEX [Concomitant]
     Indication: GASTROOESOPHAGEAL REFLUX DISEASE
     Dosage: 40 MG, QD
     Route: 048

REACTIONS (9)
  - DIABETES MELLITUS [None]
  - WEIGHT DECREASED [None]
  - INAPPROPRIATE SCHEDULE OF DRUG ADMINISTRATION [None]
  - MALAISE [None]
  - OFF LABEL USE [None]
  - HYPOPHAGIA [None]
  - DIVERTICULITIS [None]
  - ASTHENIA [None]
  - UNDERDOSE [None]
